FAERS Safety Report 15984795 (Version 3)
Quarter: 2019Q1

REPORT INFORMATION
  Report Type: Spontaneous
  Country: ES (occurrence: ES)
  Receive Date: 20190220
  Receipt Date: 20190322
  Transmission Date: 20190418
  Serious: No
  Sender: FDA-Public Use
  Company Number: ES-DUCHESNAY INC.-2062937

PATIENT
  Sex: Female

DRUGS (1)
  1. OSPHENA [Suspect]
     Active Substance: OSPEMIFENE
     Indication: ATROPHIC VULVOVAGINITIS

REACTIONS (1)
  - Uterine polyp [Unknown]
